FAERS Safety Report 4383082-5 (Version None)
Quarter: 2004Q2

REPORT INFORMATION
  Report Type: 
  Country: None (occurrence: None)
  Receive Date: 20040618
  Receipt Date: 20040608
  Transmission Date: 20050107
  Serious: Yes (Hospitalization)
  Sender: FDA-Public Use
  Company Number: 04P-087-0258966-00

PATIENT
  Age: 66 Year
  Sex: Female

DRUGS (11)
  1. PROSOM [Suspect]
     Indication: INSOMNIA
     Dosage: 2 MG, 1 IN 1 D, PER ORAL
     Route: 048
     Dates: start: 20040319, end: 20040329
  2. PROSOM [Suspect]
     Indication: PRURITUS
     Dosage: 2 MG, 1 IN 1 D, PER ORAL
     Route: 048
     Dates: start: 20040319, end: 20040329
  3. LOXOPROFEN SODIUM [Concomitant]
  4. TEPRENONE [Concomitant]
  5. OLOPATADINE HYDROCHLORIDE [Concomitant]
  6. MAGNESIUM OXIDE [Concomitant]
  7. AMLODIPINE BESYLATE [Concomitant]
  8. RANITIDINE HYDROCHLORIDE [Concomitant]
  9. CORTICOSTEROIDS [Concomitant]
  10. SHOUSAIKOTOU [Concomitant]
  11. DILTIAZEM [Concomitant]

REACTIONS (1)
  - EOSINOPHIL COUNT INCREASED [None]
